FAERS Safety Report 9005840 (Version 1)
Quarter: 2013Q1

REPORT INFORMATION
  Report Type: Spontaneous
  Country: US (occurrence: US)
  Receive Date: 20130109
  Receipt Date: 20130109
  Transmission Date: 20140127
  Serious: Yes (Hospitalization)
  Sender: FDA-Public Use
  Company Number: US-BAYER-2013-002146

PATIENT
  Age: 76 Year
  Sex: Male
  Weight: 83.9 kg

DRUGS (6)
  1. ALEVE CAPLET/TABLET,MIDOL EXTENDED RELIEF CAPLET [Suspect]
     Dosage: 2 TABLETS, BID
     Route: 048
     Dates: start: 20120403, end: 20120405
  2. FISH OIL [Concomitant]
  3. VITAMIN D [Concomitant]
  4. PRAVASTATIN [Concomitant]
  5. DILTIAZEM [Concomitant]
  6. GENERIC BABY ASPIRIN LOW DOSE [Concomitant]

REACTIONS (8)
  - Dizziness [Recovered/Resolved]
  - Faeces discoloured [None]
  - Asthenia [None]
  - Overdose [None]
  - Anaemia [None]
  - Gastric haemorrhage [None]
  - Gastric ulcer [None]
  - Gastritis erosive [None]
